FAERS Safety Report 23363230 (Version 1)
Quarter: 2024Q1

REPORT INFORMATION
  Report Type: Spontaneous
  Country: FR (occurrence: FR)
  Receive Date: 20240103
  Receipt Date: 20240103
  Transmission Date: 20240410
  Serious: Yes (Hospitalization)
  Sender: FDA-Public Use
  Company Number: None

PATIENT
  Age: 64 Year
  Sex: Female

DRUGS (4)
  1. VERAPAMIL HYDROCHLORIDE [Suspect]
     Active Substance: VERAPAMIL HYDROCHLORIDE
     Indication: Cluster headache
     Dosage: 200 MILLIGRAM, QD
     Route: 048
     Dates: start: 20230609
  2. PREDNISONE [Suspect]
     Active Substance: PREDNISONE
     Indication: Cluster headache
     Dosage: 60 MILLIGRAM, QD
     Route: 048
     Dates: start: 20230609
  3. LANSOPRAZOLE [Concomitant]
     Active Substance: LANSOPRAZOLE
     Dosage: UNK
     Route: 065
  4. VITAMIN D3 [Concomitant]
     Active Substance: CHOLECALCIFEROL
     Dosage: UNK
     Route: 065

REACTIONS (1)
  - Language disorder [Recovering/Resolving]

NARRATIVE: CASE EVENT DATE: 20230627
